FAERS Safety Report 17476918 (Version 1)
Quarter: 2020Q1

REPORT INFORMATION
  Report Type: Report from Study
  Country: AU (occurrence: AU)
  Receive Date: 20200228
  Receipt Date: 20200228
  Transmission Date: 20200409
  Serious: Yes (Hospitalization)
  Sender: FDA-Public Use
  Company Number: AU-JNJFOC-20190905615

PATIENT
  Age: 43 Year
  Sex: Female

DRUGS (2)
  1. IRON [Concomitant]
     Active Substance: IRON
  2. STELARA [Suspect]
     Active Substance: USTEKINUMAB
     Indication: CROHN^S DISEASE
     Route: 058

REACTIONS (7)
  - Oral mucosal blistering [Unknown]
  - Bone pain [Not Recovered/Not Resolved]
  - Fatigue [Unknown]
  - Pain [Unknown]
  - Head discomfort [Unknown]
  - Dizziness [Unknown]
  - Nausea [Unknown]

NARRATIVE: CASE EVENT DATE: 20190902
